FAERS Safety Report 9138969 (Version 1)
Quarter: 2013Q1

REPORT INFORMATION
  Report Type: Spontaneous
  Country: FR (occurrence: FR)
  Receive Date: 20130305
  Receipt Date: 20130305
  Transmission Date: 20140127
  Serious: Yes (Other)
  Sender: FDA-Public Use
  Company Number: FR-BAYER-2013-027539

PATIENT
  Age: 70 Year
  Sex: Male

DRUGS (11)
  1. NEXAVAR [Suspect]
     Dosage: 200 MG, BID
     Dates: start: 20080701
  2. NEXAVAR [Suspect]
     Dosage: 400 MG, BID
     Dates: end: 20110801
  3. ZOMETA [Suspect]
     Dosage: 1 DF, QMO
     Dates: start: 20090101, end: 20090601
  4. ZOMETA [Suspect]
     Dosage: 1 DF, MONTHLY
     Dates: start: 20100111, end: 20100601
  5. AVASTIN [Suspect]
     Dosage: UNK
     Dates: start: 20110823
  6. AVODART [Concomitant]
  7. IMOVANE [Concomitant]
     Dosage: UNK
  8. LEVOTHYROXINE SODIUM [Concomitant]
     Dosage: UNK
  9. LEXOMIL [Concomitant]
     Dosage: UNK
  10. OMIX [Concomitant]
     Dosage: UNK
  11. TRAMADOL HYDROCHLORIDE [Concomitant]
     Dosage: UNK

REACTIONS (4)
  - Osteonecrosis of jaw [Not Recovered/Not Resolved]
  - Exposed bone in jaw [Not Recovered/Not Resolved]
  - Impaired healing [Not Recovered/Not Resolved]
  - Drug tolerance [Not Recovered/Not Resolved]
